FAERS Safety Report 4338513-3 (Version None)
Quarter: 2004Q2

REPORT INFORMATION
  Report Type: 
  Country: None (occurrence: None)
  Receive Date: 20040414
  Receipt Date: 20040402
  Transmission Date: 20050107
  Serious: Yes (Hospitalization)
  Sender: FDA-Public Use
  Company Number: JP-GLAXOSMITHKLINE-B0329287A

PATIENT
  Age: 60 Year
  Sex: Male

DRUGS (8)
  1. FLOLAN [Suspect]
     Indication: PULMONARY HYPERTENSION
     Route: 042
     Dates: start: 20010913
  2. WARFARIN POTASSIUM [Suspect]
     Route: 048
     Dates: end: 20021210
  3. GASTER [Suspect]
     Route: 048
     Dates: end: 20021220
  4. FUROSEMIDE [Concomitant]
     Route: 048
  5. SLOW-K [Concomitant]
     Route: 048
  6. LENDORM [Concomitant]
     Route: 048
  7. PIMOBENDAN [Concomitant]
  8. DOBUTAMINE HCL [Concomitant]

REACTIONS (6)
  - CARDIAC ARREST [None]
  - CATHETER RELATED INFECTION [None]
  - EMPHYSEMA [None]
  - RASH [None]
  - RETINAL HAEMORRHAGE [None]
  - VENTRICULAR HYPERTROPHY [None]
